FAERS Safety Report 16254559 (Version 1)
Quarter: 2019Q2

REPORT INFORMATION
  Report Type: Spontaneous
  Country: US (occurrence: US)
  Receive Date: 20190326
  Receipt Date: 20190326
  Transmission Date: 20190711
  Serious: Yes (Hospitalization)
  Sender: FDA-Public Use
  Company Number: None

PATIENT
  Age: 56 Year
  Sex: Female

DRUGS (11)
  1. MAGNESIUM [Concomitant]
     Active Substance: MAGNESIUM
  2. FLUTICASONE SPR [Concomitant]
  3. IODINE CRY RESUBLIM [Concomitant]
  4. CALCIUM CHW [Concomitant]
  5. LAURIC ACID POW [Concomitant]
  6. WOMENS CAP [Concomitant]
  7. HUMIRA [Suspect]
     Active Substance: ADALIMUMAB
     Indication: PSORIASIS
     Route: 058
     Dates: start: 20171011
  8. CRUSH VIT [Concomitant]
  9. FISH OIL [Concomitant]
     Active Substance: FISH OIL
  10. PREMARIN INJ [Concomitant]
  11. VITAMIN D3 [Concomitant]
     Active Substance: CHOLECALCIFEROL

REACTIONS (5)
  - Arthritis [None]
  - Therapy cessation [None]
  - Condition aggravated [None]
  - Cholecystectomy [None]
  - Psoriasis [None]
